FAERS Safety Report 4948378-4 (Version None)
Quarter: 2006Q1

REPORT INFORMATION
  Report Type: 
  Country: None (occurrence: None)
  Receive Date: 20060201
  Receipt Date: 20051107
  Transmission Date: 20060701
  Serious: No
  Sender: FDA-Public Use
  Company Number: 2005PV004195

PATIENT
  Age: 42 Year
  Sex: Female

DRUGS (3)
  1. BYETTA [Suspect]
     Dosage: 5 MCG
     Dates: start: 20051017, end: 20050101
  2. GLUCOPHAGE [Concomitant]
  3. ACTOS [Concomitant]

REACTIONS (4)
  - INJECTION SITE RASH [None]
  - RASH [None]
  - THROAT TIGHTNESS [None]
  - WEIGHT DECREASED [None]
